FAERS Safety Report 4296149-7 (Version None)
Quarter: 2004Q1

REPORT INFORMATION
  Report Type: 
  Country: None (occurrence: None)
  Receive Date: 20040217
  Receipt Date: 20030829
  Transmission Date: 20041129
  Serious: Yes (Hospitalization, Other)
  Sender: FDA-Public Use
  Company Number: US-GLAXOSMITHKLINE-A0424149B

PATIENT
  Age: 33 Year
  Sex: Female

DRUGS (4)
  1. LAMICTAL [Suspect]
     Route: 048
     Dates: start: 20030624, end: 20030701
  2. WELLBUTRIN [Concomitant]
     Indication: DEPRESSION
     Dosage: 200MG PER DAY
     Route: 048
  3. LEVOXYL [Concomitant]
     Indication: HYPOTHYROIDISM
     Dosage: 125MCG PER DAY
     Route: 048
     Dates: start: 20030101
  4. VIVARIN [Concomitant]
     Dosage: 200MG PER DAY
     Route: 048
     Dates: start: 20030401

REACTIONS (8)
  - ERYTHEMA MULTIFORME [None]
  - HYPERSENSITIVITY [None]
  - LOCAL SWELLING [None]
  - LYMPHADENOPATHY [None]
  - PYREXIA [None]
  - STEVENS-JOHNSON SYNDROME [None]
  - SWELLING FACE [None]
  - URTICARIA [None]
